FAERS Safety Report 21135789 (Version 1)
Quarter: 2022Q3

REPORT INFORMATION
  Report Type: Spontaneous
  Country: JP (occurrence: JP)
  Receive Date: 20220727
  Receipt Date: 20220727
  Transmission Date: 20221027
  Serious: Yes (Hospitalization, Other)
  Sender: FDA-Public Use
  Company Number: JP-ABBVIE-22K-087-4349917-00

PATIENT
  Age: 49 Year
  Sex: Male
  Weight: 64 kg

DRUGS (4)
  1. HUMIRA [Suspect]
     Active Substance: ADALIMUMAB
     Indication: Colitis ulcerative
     Route: 058
     Dates: start: 2010, end: 20211223
  2. HUMIRA [Suspect]
     Active Substance: ADALIMUMAB
     Dosage: HIGH DOSE
     Route: 058
     Dates: start: 20211224, end: 20220317
  3. AZATHIOPRINE [Suspect]
     Active Substance: AZATHIOPRINE
     Indication: Colitis ulcerative
     Route: 048
     Dates: start: 201005, end: 20220308
  4. MESALAMINE [Concomitant]
     Active Substance: MESALAMINE
     Indication: Colitis ulcerative
     Route: 048
     Dates: start: 20150403, end: 20220308

REACTIONS (3)
  - Ileus [Unknown]
  - Colon cancer [Recovered/Resolved]
  - Large intestinal stenosis [Unknown]

NARRATIVE: CASE EVENT DATE: 20210617
